FAERS Safety Report 24661127 (Version 1)
Quarter: 2024Q4

REPORT INFORMATION
  Report Type: Spontaneous
  Country: US (occurrence: US)
  Receive Date: 20241125
  Receipt Date: 20241125
  Transmission Date: 20250115
  Serious: No
  Sender: AVADEL CNS PHARMACEUTICALS, LLC
  Company Number: US-AVADEL CNS PHARMACEUTICALS, LLC-2024AVA01503

PATIENT
  Age: 50 Year
  Sex: Female

DRUGS (5)
  1. LUMRYZ [Suspect]
     Active Substance: SODIUM OXYBATE
     Indication: Narcolepsy
     Dosage: 9 G, ONCE
     Dates: start: 20240801, end: 20240801
  2. LUMRYZ [Suspect]
     Active Substance: SODIUM OXYBATE
     Indication: Cataplexy
  3. TOPAMAX [Concomitant]
     Active Substance: TOPIRAMATE
  4. MECLIZINE HYDROCHLORIDE [Concomitant]
     Active Substance: MECLIZINE HYDROCHLORIDE
  5. TEMAZEPAM [Concomitant]
     Active Substance: TEMAZEPAM

REACTIONS (7)
  - Hypoaesthesia [Recovered/Resolved]
  - Night sweats [Recovered/Resolved]
  - Paralysis [Recovered/Resolved]
  - Gait disturbance [Unknown]
  - Diarrhoea [Recovered/Resolved]
  - Vomiting [Recovered/Resolved]
  - Memory impairment [Recovered/Resolved]

NARRATIVE: CASE EVENT DATE: 20240801
